FAERS Safety Report 8828905 (Version 1)
Quarter: 2012Q4

REPORT INFORMATION
  Report Type: 
  Country: FR (occurrence: FR)
  Receive Date: 20121009
  Receipt Date: 20121009
  Transmission Date: 20130627
  Serious: Yes (Other)
  Sender: FDA-Public Use
  Company Number: FR-GENZYME-CLOF-1002316

PATIENT
  Age: 2 Year
  Sex: Female

DRUGS (3)
  1. EVOLTRA [Suspect]
     Indication: ACUTE LYMPHOCYTIC LEUKAEMIA RECURRENT
     Dosage: 40 mg/m2, qd
     Route: 065
  2. ETOPOSIDE [Concomitant]
     Indication: PRODUCT USED FOR UNKNOWN INDICATION
     Dosage: 100 mg/m2, qd
     Route: 065
  3. CYCLOPHOSPHAMIDE [Concomitant]
     Indication: PRODUCT USED FOR UNKNOWN INDICATION
     Dosage: 40 mg, UNK
     Route: 065

REACTIONS (3)
  - Hepatotoxicity [Unknown]
  - Bone marrow failure [Not Recovered/Not Resolved]
  - Sepsis [Unknown]
